FAERS Safety Report 24035635 (Version 2)
Quarter: 2024Q3

REPORT INFORMATION
  Report Type: Spontaneous
  Country: US (occurrence: US)
  Receive Date: 20240701
  Receipt Date: 20240722
  Transmission Date: 20241016
  Serious: No
  Sender: PFIZER
  Company Number: US-PFIZER INC-202400202168

PATIENT
  Age: 48 Year
  Sex: Female
  Weight: 93.878 kg

DRUGS (5)
  1. PAXLOVID [Suspect]
     Active Substance: NIRMATRELVIR\RITONAVIR
     Indication: COVID-19 treatment
     Dosage: NIRMATRELVIR 300 MG/RITONAVIR 100 MG, 2X/DAY
     Route: 048
     Dates: start: 20240616, end: 20240620
  2. SYNTHROID [Concomitant]
     Active Substance: LEVOTHYROXINE SODIUM
     Dosage: 137 UG, 1X/DAY
  3. VALSARTAN [Concomitant]
     Active Substance: VALSARTAN
     Dosage: 160 MG, 1X/DAY
  4. PROGESTERONE [Concomitant]
     Active Substance: PROGESTERONE
     Dosage: 100 MG, 1X/DAY
  5. ESTRADIOL [Concomitant]
     Active Substance: ESTRADIOL
     Dosage: 0.375 MG PATCH, 4 DAYS

REACTIONS (2)
  - COVID-19 [Recovered/Resolved]
  - Disease recurrence [Recovered/Resolved]

NARRATIVE: CASE EVENT DATE: 20240626
